FAERS Safety Report 9109115 (Version 3)
Quarter: 2013Q2

REPORT INFORMATION
  Report Type: Spontaneous
  Country: JP (occurrence: JP)
  Receive Date: 20130222
  Receipt Date: 20130405
  Transmission Date: 20140414
  Serious: Yes (Hospitalization)
  Sender: FDA-Public Use
  Company Number: JP-GLAXOSMITHKLINE-B0866985A

PATIENT
  Age: 35 Year
  Sex: Male
  Weight: 69 kg

DRUGS (10)
  1. LAMICTAL [Suspect]
     Indication: BIPOLAR DISORDER
     Dosage: 25MG PER DAY
     Route: 048
     Dates: start: 20121225, end: 20130107
  2. LAMICTAL [Suspect]
     Indication: BIPOLAR DISORDER
     Dosage: 25MG PER DAY
     Route: 048
     Dates: start: 20130108, end: 20130121
  3. LAMICTAL [Suspect]
     Indication: BIPOLAR DISORDER
     Route: 048
     Dates: start: 20130122, end: 20130129
  4. DEPAKENE-R [Concomitant]
     Dosage: 800MG PER DAY
     Route: 048
     Dates: start: 201206
  5. WYPAX [Concomitant]
     Route: 048
  6. LENDORMIN [Concomitant]
     Dosage: .25MG PER DAY
     Route: 048
  7. ROHYPNOL [Concomitant]
     Indication: INSOMNIA
     Route: 048
     Dates: start: 20130108
  8. AMOBAN [Concomitant]
     Dosage: 7.5MG PER DAY
     Route: 048
  9. MAGLAX [Concomitant]
     Dosage: 330MG THREE TIMES PER DAY
     Route: 048
  10. CHLORPROMAZINE [Concomitant]
     Indication: TENSION
     Route: 048
     Dates: start: 20121225, end: 20130107

REACTIONS (23)
  - Erythema multiforme [Unknown]
  - Stevens-Johnson syndrome [Recovering/Resolving]
  - Hepatic function abnormal [Unknown]
  - Drug eruption [Recovering/Resolving]
  - Erythema [Unknown]
  - Cheilitis [Unknown]
  - Lip swelling [Unknown]
  - Pyrexia [Unknown]
  - Pruritus [Recovering/Resolving]
  - Pain in extremity [Unknown]
  - Jaundice [Unknown]
  - Hepatosplenomegaly [Unknown]
  - Abdominal discomfort [Unknown]
  - Nasopharyngitis [Unknown]
  - Lip erosion [Unknown]
  - Oral mucosa erosion [Unknown]
  - Rash maculo-papular [Unknown]
  - Skin degenerative disorder [Unknown]
  - Lymphocytic infiltration [Unknown]
  - Mucous membrane disorder [Unknown]
  - Nausea [Unknown]
  - Decreased appetite [Unknown]
  - Lymphadenopathy [Unknown]
